FAERS Safety Report 8550808-6 (Version None)
Quarter: 2012Q3

REPORT INFORMATION
  Report Type: 
  Country: None (occurrence: None)
  Receive Date: 20120730
  Receipt Date: 20120714
  Transmission Date: 20120928
  Serious: No
  Sender: FDA-Public Use
  Company Number: US-JNJFOC-20120605032

PATIENT
  Sex: Female

DRUGS (3)
  1. INVEGA SUSTENNA [Suspect]
     Indication: PRODUCT USED FOR UNKNOWN INDICATION
     Route: 030
     Dates: start: 20120607
  2. INVEGA SUSTENNA [Suspect]
     Route: 030
     Dates: start: 20120301
  3. LEVOTHYROXINE SODIUM [Concomitant]
     Route: 048

REACTIONS (2)
  - DRUG DOSE OMISSION [None]
  - DEVICE MALFUNCTION [None]
